FAERS Safety Report 22367921 (Version 1)
Quarter: 2023Q2

REPORT INFORMATION
  Report Type: Spontaneous
  Country: US (occurrence: None)
  Receive Date: 20230525
  Receipt Date: 20230525
  Transmission Date: 20230721
  Serious: Yes (Death)
  Sender: FDA-Public Use
  Company Number: None

PATIENT
  Age: 69 Year
  Sex: Female

DRUGS (15)
  1. IBRANCE [Suspect]
     Active Substance: PALBOCICLIB
     Indication: Breast cancer female
     Dosage: 1 TAB QD 21DON7DOFF PO?
     Route: 048
  2. EXEMESTANE [Concomitant]
     Active Substance: EXEMESTANE
  3. NORCO [Concomitant]
  4. DULOXETINE [Concomitant]
     Active Substance: DULOXETINE
  5. LEVOTHYROXINE [Concomitant]
  6. NORTRIPTYLINE [Concomitant]
     Active Substance: NORTRIPTYLINE
  7. ATORVASTATIN [Concomitant]
  8. CELECOXIB [Concomitant]
     Active Substance: CELECOXIB
  9. ASPIRIN [Concomitant]
     Active Substance: ASPIRIN
  10. ergocaliciferol [Concomitant]
  11. ASCORBIC ACID [Concomitant]
     Active Substance: ASCORBIC ACID
  12. triple omega [Concomitant]
  13. VITAMIN C [Concomitant]
     Active Substance: ASCORBIC ACID
  14. xgeva SQ [Concomitant]
  15. EZ flu shot-flucelvax quad IM [Concomitant]

REACTIONS (1)
  - Death [None]

NARRATIVE: CASE EVENT DATE: 20230504
